FAERS Safety Report 4412310-2 (Version None)
Quarter: 2004Q3

REPORT INFORMATION
  Report Type: 
  Country: None (occurrence: None)
  Receive Date: 20040730
  Receipt Date: 20040623
  Transmission Date: 20050211
  Serious: Yes (Hospitalization)
  Sender: FDA-Public Use
  Company Number: JP-MERCK-0406USA02279

PATIENT
  Age: 10 Year
  Sex: Male
  Weight: 40 kg

DRUGS (4)
  1. SINGULAIR [Suspect]
     Indication: ASTHMA
     Route: 048
     Dates: start: 20040607, end: 20040609
  2. SINGULAIR [Suspect]
     Route: 048
     Dates: start: 20040601
  3. UNIPHYL [Concomitant]
     Route: 048
  4. HOKUNALIN [Concomitant]
     Route: 065

REACTIONS (3)
  - MALLORY-WEISS SYNDROME [None]
  - PRESCRIBED OVERDOSE [None]
  - VOMITING [None]
